FAERS Safety Report 7252668-2 (Version None)
Quarter: 2011Q1

REPORT INFORMATION
  Report Type: 
  Country: None (occurrence: None)
  Receive Date: 20110129
  Receipt Date: 20100414
  Transmission Date: 20110831
  Serious: No
  Sender: FDA-Public Use
  Company Number: US-ABBOTT-10P-163-0639409-00

PATIENT
  Sex: Female

DRUGS (5)
  1. CLOBETAZOL [Concomitant]
     Indication: PSORIASIS
     Route: 061
  2. HUMIRA [Suspect]
     Indication: PSORIASIS
     Dates: start: 20090501, end: 20100201
  3. DESONIDE [Concomitant]
     Indication: PSORIASIS
     Route: 061
  4. TYLENOL-500 [Concomitant]
     Indication: ARTHRALGIA
  5. DOVONEX [Concomitant]
     Indication: PSORIASIS
     Route: 061

REACTIONS (2)
  - PSORIATIC ARTHROPATHY [None]
  - HYPERTENSION [None]
